FAERS Safety Report 15555456 (Version 1)
Quarter: 2018Q4

REPORT INFORMATION
  Report Type: Spontaneous
  Country: JP (occurrence: JP)
  Receive Date: 20181026
  Receipt Date: 20181026
  Transmission Date: 20190205
  Serious: Yes (Other)
  Sender: FDA-Public Use
  Company Number: JP-MYLANLABS-2018M1079176

PATIENT
  Age: 37 Year
  Sex: Female

DRUGS (4)
  1. SULPHAMETHOXAZOLE/TRIMETHOPRIM [Suspect]
     Active Substance: SULFAMETHOXAZOLE\TRIMETHOPRIM
     Indication: OPPORTUNISTIC INFECTION PROPHYLAXIS
     Route: 065
  2. IPILIMUMAB [Interacting]
     Active Substance: IPILIMUMAB
     Indication: MALIGNANT MELANOMA
     Route: 065
  3. NIVOLUMAB [Interacting]
     Active Substance: NIVOLUMAB
     Indication: MALIGNANT MELANOMA
     Dosage: RECEIVED 12 CYCLES OVER 10 MONTHS.
     Route: 065
  4. PIPERACILLIN/TAZOBACTAM [Suspect]
     Active Substance: PIPERACILLIN SODIUM\TAZOBACTAM SODIUM
     Indication: OPPORTUNISTIC INFECTION PROPHYLAXIS
     Route: 065

REACTIONS (2)
  - Immune reconstitution inflammatory syndrome [Recovered/Resolved]
  - Erythema multiforme [Recovered/Resolved]
